FAERS Safety Report 12440510 (Version 1)
Quarter: 2016Q2

REPORT INFORMATION
  Report Type: Spontaneous
  Country: US (occurrence: US)
  Receive Date: 20160606
  Receipt Date: 20160606
  Transmission Date: 20160815
  Serious: No
  Sender: FDA-Public Use
  Company Number: ALCN2016US003968

PATIENT
  Age: 48 Year
  Sex: Female

DRUGS (2)
  1. ICAPS LZ [Suspect]
     Active Substance: VITAMINS
     Indication: PRODUCT USED FOR UNKNOWN INDICATION
     Dosage: 1 TABLET, BID
     Route: 048
     Dates: start: 201605, end: 201605
  2. ICAPS LZ [Suspect]
     Active Substance: VITAMINS
     Dosage: 1 TABLET BID
     Route: 048
     Dates: start: 201604, end: 201605

REACTIONS (1)
  - Rash [Recovering/Resolving]

NARRATIVE: CASE EVENT DATE: 201605
